FAERS Safety Report 19018236 (Version 1)
Quarter: 2021Q1

REPORT INFORMATION
  Report Type: Spontaneous
  Country: US (occurrence: US)
  Receive Date: 20210316
  Receipt Date: 20210316
  Transmission Date: 20210420
  Serious: Yes (Hospitalization)
  Sender: FDA-Public Use
  Company Number: None

PATIENT
  Sex: Male

DRUGS (12)
  1. AMOXICILLIN. [Concomitant]
     Active Substance: AMOXICILLIN
  2. FARXIGA [Concomitant]
     Active Substance: DAPAGLIFLOZIN PROPANEDIOL
  3. ATORVASTATIN [Concomitant]
     Active Substance: ATORVASTATIN
  4. ENTRESTO [Concomitant]
     Active Substance: SACUBITRIL\VALSARTAN
  5. SPIRONOLACT [Concomitant]
     Active Substance: SPIRONOLACTONE
  6. METOPROL SUC ER [Concomitant]
     Active Substance: METOPROLOL SUCCINATE
  7. BUMETANIDE. [Concomitant]
     Active Substance: BUMETANIDE
  8. TIZANNIDINE [Concomitant]
  9. LISINOPRIL. [Concomitant]
     Active Substance: LISINOPRIL
  10. TAMSULOSIN [Concomitant]
     Active Substance: TAMSULOSIN
  11. VYNDAMAX [Suspect]
     Active Substance: TAFAMIDIS
     Indication: AMYLOIDOSIS
     Route: 048
     Dates: start: 20201223
  12. FUROSEMIDE. [Concomitant]
     Active Substance: FUROSEMIDE

REACTIONS (2)
  - Urinary tract infection [None]
  - Loss of consciousness [None]
